FAERS Safety Report 5699715-7 (Version None)
Quarter: 2008Q2

REPORT INFORMATION
  Report Type: 
  Country: None (occurrence: None)
  Receive Date: 20080410
  Receipt Date: 20080403
  Transmission Date: 20081010
  Serious: Yes (Hospitalization)
  Sender: FDA-Public Use
  Company Number: PHRM2008FR01192

PATIENT
  Age: 5 Year
  Sex: Female
  Weight: 16 kg

DRUGS (7)
  1. TEGRETOL [Suspect]
     Indication: TOXIC ENCEPHALOPATHY
     Dosage: 80 MG, BID
     Route: 048
     Dates: start: 20080108, end: 20080117
  2. TEGRETOL [Suspect]
     Dosage: 150 MG, BID
     Route: 048
     Dates: start: 20080118, end: 20080208
  3. SABRIL [Concomitant]
  4. PROGRAF [Concomitant]
     Indication: LIVER TRANSPLANT
  5. RIVOTRIL [Concomitant]
  6. OMEPRAZOLE [Concomitant]
  7. ICAZ [Concomitant]

REACTIONS (7)
  - ALANINE AMINOTRANSFERASE INCREASED [None]
  - ASPARTATE AMINOTRANSFERASE INCREASED [None]
  - BLOOD ALKALINE PHOSPHATASE INCREASED [None]
  - CHOLANGITIS [None]
  - CYTOLYTIC HEPATITIS [None]
  - GAMMA-GLUTAMYLTRANSFERASE INCREASED [None]
  - HEPATIC ENZYME INCREASED [None]
